FAERS Safety Report 7102671-8 (Version None)
Quarter: 2010Q4

REPORT INFORMATION
  Report Type: 
  Country: None (occurrence: None)
  Receive Date: 20101115
  Receipt Date: 20101111
  Transmission Date: 20110411
  Serious: Yes (Other)
  Sender: FDA-Public Use
  Company Number: US-JNJFOC-20100503320

PATIENT
  Age: 56 Year
  Sex: Female
  Weight: 52.62 kg

DRUGS (3)
  1. CHILDREN'S MOTRIN [Suspect]
     Route: 048
  2. CHILDREN'S MOTRIN [Suspect]
     Indication: HEADACHE
     Dosage: EVERY 6 HOURS EVERYDAY FOR 3 WEEKS
     Route: 048
  3. MOTRIN [Concomitant]
     Indication: HEADACHE

REACTIONS (7)
  - GASTRIC DISORDER [None]
  - INFECTION [None]
  - INFLUENZA LIKE ILLNESS [None]
  - INTENTIONAL DRUG MISUSE [None]
  - PRODUCT QUALITY ISSUE [None]
  - THROAT IRRITATION [None]
  - WRONG DRUG ADMINISTERED [None]
